FAERS Safety Report 4761155-2 (Version None)
Quarter: 2005Q3

REPORT INFORMATION
  Report Type: 
  Country: None (occurrence: None)
  Receive Date: 20050901
  Receipt Date: 20050823
  Transmission Date: 20060218
  Serious: No
  Sender: FDA-Public Use
  Company Number: 05H-167-0302175-00

PATIENT

DRUGS (3)
  1. HEAPRIN SODIUM INJECTION (HEAPRIN SOIDUM) (HEPARIN SODIUM) [Suspect]
     Indication: ANTICOAGULANT THERAPY
     Dosage: 24TH FOLLOWING THE PROCEDURE INTRAVENOUS
     Route: 042
  2. HEPARIN SODIUM [Suspect]
     Indication: ANTICOAGULANT THERAPY
     Dosage: 5000 UNIT, ONCE, INTRAVENOUS
     Route: 042
  3. ASPIRIN [Concomitant]

REACTIONS (1)
  - CEREBROVASCULAR ACCIDENT [None]
